FAERS Safety Report 6406015-6 (Version None)
Quarter: 2009Q4

REPORT INFORMATION
  Report Type: 
  Country: None (occurrence: None)
  Receive Date: 20091019
  Receipt Date: 20091007
  Transmission Date: 20100525
  Serious: Yes (Hospitalization)
  Sender: FDA-Public Use
  Company Number: US-BIOGENIDEC-2009BI032962

PATIENT
  Age: 28 Year
  Sex: Female

DRUGS (2)
  1. AVONEX [Suspect]
     Indication: MULTIPLE SCLEROSIS
     Route: 030
     Dates: start: 20081201
  2. AVONEX [Suspect]
     Route: 030
     Dates: start: 20030801, end: 20050101

REACTIONS (3)
  - BLOOD COUNT ABNORMAL [None]
  - DEHYDRATION [None]
  - MULTIPLE SCLEROSIS RELAPSE [None]
